FAERS Safety Report 4449891-9 (Version None)
Quarter: 2004Q3

REPORT INFORMATION
  Report Type: 
  Country: None (occurrence: None)
  Receive Date: 20040915
  Receipt Date: 20040723
  Transmission Date: 20050211
  Serious: Yes (Life-Threatening)
  Sender: FDA-Public Use
  Company Number: JP-MERCK-0407USA02367

PATIENT
  Age: 78 Year
  Sex: Male
  Weight: 70 kg

DRUGS (2)
  1. PRIMAXIN [Suspect]
     Indication: INFECTION
     Route: 041
     Dates: start: 20040722, end: 20040722
  2. STRONGER NEO-MINOPHAGEN C [Concomitant]
     Route: 042

REACTIONS (16)
  - ALANINE AMINOTRANSFERASE INCREASED [None]
  - ASPARTATE AMINOTRANSFERASE INCREASED [None]
  - ASTHENIA [None]
  - ASTHMA [None]
  - BLOOD LACTATE DEHYDROGENASE INCREASED [None]
  - BLOOD PRESSURE INCREASED [None]
  - C-REACTIVE PROTEIN INCREASED [None]
  - CONVULSION [None]
  - HYPERGLYCAEMIA [None]
  - HYPOAESTHESIA [None]
  - LOSS OF CONSCIOUSNESS [None]
  - MEMORY IMPAIRMENT [None]
  - PCO2 DECREASED [None]
  - PROTEIN URINE PRESENT [None]
  - PYREXIA [None]
  - TACHYCARDIA [None]
